FAERS Safety Report 7776729-4 (Version None)
Quarter: 2011Q3

REPORT INFORMATION
  Report Type: 
  Country: None (occurrence: None)
  Receive Date: 20110922
  Receipt Date: 20110922
  Transmission Date: 20111222
  Serious: Yes (Other)
  Sender: FDA-Public Use
  Company Number: None

PATIENT
  Sex: Female

DRUGS (1)
  1. INCIVEK [Suspect]
     Dosage: 750 MG TID PO
     Route: 048
     Dates: start: 20110705, end: 20110823

REACTIONS (5)
  - HAEMORRHOIDAL HAEMORRHAGE [None]
  - PRURITUS [None]
  - LOSS OF CONSCIOUSNESS [None]
  - DIARRHOEA [None]
  - ASTHENIA [None]
